FAERS Safety Report 25494110 (Version 1)
Quarter: 2025Q2

REPORT INFORMATION
  Report Type: Spontaneous
  Country: FR (occurrence: FR)
  Receive Date: 20250630
  Receipt Date: 20250630
  Transmission Date: 20250717
  Serious: Yes (Life-Threatening, Other)
  Sender: AUROBINDO
  Company Number: FR-AFSSAPS-AM2025000408

PATIENT
  Age: 59 Year
  Sex: Male
  Weight: 96.5 kg

DRUGS (1)
  1. OXYCODONE [Suspect]
     Active Substance: OXYCODONE
     Indication: Cancer pain
     Route: 065
     Dates: start: 20250418, end: 20250430

REACTIONS (5)
  - Coma [Recovered/Resolved]
  - Respiratory distress [Recovered/Resolved]
  - Miosis [Recovered/Resolved]
  - Livedo reticularis [Recovered/Resolved]
  - Device programming error [Recovered/Resolved]

NARRATIVE: CASE EVENT DATE: 20250429
